FAERS Safety Report 10693011 (Version 3)
Quarter: 2015Q2

REPORT INFORMATION
  Report Type: Report from Study
  Country: JP (occurrence: JP)
  Receive Date: 20150106
  Receipt Date: 20150409
  Transmission Date: 20150821
  Serious: Yes (Death, Hospitalization, Other)
  Sender: FDA-Public Use
  Company Number: JP-OTSUKA-JP-2014-20091

PATIENT

DRUGS (16)
  1. SAMSCA [Suspect]
     Active Substance: TOLVAPTAN
     Indication: OEDEMA DUE TO HEPATIC DISEASE
     Dosage: 3.75 MG MILLIGRAM(S), QAM
     Route: 048
     Dates: start: 20141126, end: 20141128
  2. FUROSEMIDE. [Suspect]
     Active Substance: FUROSEMIDE
     Indication: OEDEMA DUE TO HEPATIC DISEASE
     Dosage: 20 MG MILLIGRAM(S), DAILY DOSE
     Route: 048
     Dates: end: 20141205
  3. FUROSEMIDE. [Suspect]
     Active Substance: FUROSEMIDE
     Indication: ASCITES
     Dosage: 40 MG MILLIGRAM(S), DAILY DOSE
     Route: 048
     Dates: start: 20141206, end: 20141208
  4. ALBUMIN [Concomitant]
     Active Substance: ALBUMIN (HUMAN)
     Indication: OEDEMA DUE TO HEPATIC DISEASE
     Dosage: 100 ML MILLILITRE(S), DAILY DOSE
     Route: 042
     Dates: start: 20141209, end: 20141211
  5. PROHEPARUM [Concomitant]
     Active Substance: CHOLINE BITARTRATE\CYSTEINE\INOSITOL\MAMMAL LIVER
     Indication: PRODUCT USED FOR UNKNOWN INDICATION
     Dosage: 6 DF DOSAGE FORM, DAILY DOSE
     Route: 048
  6. URSODEOXYCHOLIC ACID [Concomitant]
     Active Substance: URSODIOL
     Indication: PRODUCT USED FOR UNKNOWN INDICATION
     Dosage: 900 MG MILLIGRAM(S), DAILY DOSE
     Route: 048
  7. JANUVIA [Concomitant]
     Active Substance: SITAGLIPTIN PHOSPHATE
     Indication: PRODUCT USED FOR UNKNOWN INDICATION
     Dosage: 50 MG MILLIGRAM(S), DAILY DOSE
     Route: 048
  8. ALBUMIN [Concomitant]
     Active Substance: ALBUMIN (HUMAN)
     Indication: ASCITES
  9. SPIRONOLACTONE. [Suspect]
     Active Substance: SPIRONOLACTONE
     Indication: OEDEMA DUE TO HEPATIC DISEASE
     Dosage: 25 MG MILLIGRAM(S), DAILY DOSE
     Route: 048
  10. IRBETAN [Concomitant]
     Active Substance: IRBESARTAN
     Indication: PRODUCT USED FOR UNKNOWN INDICATION
     Dosage: 100 MG MILLIGRAM(S), DAILY DOSE
     Route: 048
  11. FUROSEMIDE. [Suspect]
     Active Substance: FUROSEMIDE
     Dosage: 20 MG MILLIGRAM(S), DAILY DOSE
     Route: 048
     Dates: start: 20141209, end: 20141211
  12. FUROSEMIDE. [Suspect]
     Active Substance: FUROSEMIDE
     Indication: ASCITES
  13. FUROSEMIDE. [Suspect]
     Active Substance: FUROSEMIDE
     Indication: OEDEMA DUE TO HEPATIC DISEASE
     Dosage: 20 MG MILLIGRAM(S), DAILY DOSE
     Route: 042
     Dates: start: 20141209
  14. SAMSCA [Suspect]
     Active Substance: TOLVAPTAN
     Dosage: 7.5 MG MILLIGRAM(S), QAM
     Route: 048
     Dates: start: 20141129, end: 20141209
  15. PAMILCON [Concomitant]
     Active Substance: GLYBURIDE
     Indication: PRODUCT USED FOR UNKNOWN INDICATION
     Dosage: 2.5 MG MILLIGRAM(S), DAILY DOSE
     Route: 048
  16. ALBUMIN [Concomitant]
     Active Substance: ALBUMIN (HUMAN)
     Indication: HYPOALBUMINAEMIA

REACTIONS (3)
  - Renal impairment [Fatal]
  - Hepatic failure [Fatal]
  - Ascites [Not Recovered/Not Resolved]

NARRATIVE: CASE EVENT DATE: 20141204
